FAERS Safety Report 12185282 (Version 1)
Quarter: 2016Q1

REPORT INFORMATION
  Report Type: Spontaneous
  Country: DE (occurrence: DE)
  Receive Date: 20160316
  Receipt Date: 20160316
  Transmission Date: 20160526
  Serious: Yes (Life-Threatening, Hospitalization, Disabling, Other)
  Sender: FDA-Public Use
  Company Number: GXKR2016DE001353

PATIENT
  Sex: Female

DRUGS (1)
  1. MONA HEXAL [Suspect]
     Active Substance: CHLORMADINONE ACETATE\ETHINYL ESTRADIOL
     Indication: CONTRACEPTION
     Route: 048

REACTIONS (5)
  - Pulmonary embolism [Unknown]
  - Dyspnoea [Unknown]
  - Pneumonia [Unknown]
  - Thrombosis [Unknown]
  - Cough [Unknown]
